FAERS Safety Report 20715438 (Version 1)
Quarter: 2022Q2

REPORT INFORMATION
  Report Type: Spontaneous
  Country: US (occurrence: US)
  Receive Date: 20220415
  Receipt Date: 20220415
  Transmission Date: 20220721
  Serious: Yes (Death)
  Sender: FDA-Public Use
  Company Number: US-HQ SPECIALTY-US-2022INT000101

PATIENT

DRUGS (9)
  1. CISPLATIN [Suspect]
     Active Substance: CISPLATIN
     Indication: Bladder cancer
     Dosage: 15 MG/M2 ON DAYS 1 TO 3, 8 TO 10, AND 15 TO 17 (INDUCTION)
     Route: 065
  2. CISPLATIN [Suspect]
     Active Substance: CISPLATIN
     Dosage: 15 MG/M2 ON DAYS 1, 2, 8, AND 9 (CONSOLIDATION)
     Route: 065
  3. CISPLATIN [Suspect]
     Active Substance: CISPLATIN
     Dosage: 70 MG/M2 ON DAY 8 (ADJUVANT)
     Route: 065
  4. FLUOROURACIL [Suspect]
     Active Substance: FLUOROURACIL
     Indication: Bladder cancer
     Dosage: 400 MG/M2 ON DAYS 1 TO 3 AND 15 TO 17 (INDUCTION)
     Route: 065
  5. FLUOROURACIL [Suspect]
     Active Substance: FLUOROURACIL
     Dosage: 400 MG/M2 ON DAYS 1 TO 3 AND 8 TO 10 (CONSOLIDATION)
     Route: 065
  6. GEMCITABINE [Suspect]
     Active Substance: GEMCITABINE
     Indication: Bladder cancer
     Dosage: 1000 MG/M2 ON DAYS 1 AND 8 (ADJUVANT)
     Route: 065
  7. RADIATION THERAPY [Suspect]
     Active Substance: RADIATION THERAPY
     Indication: Bladder cancer
     Dosage: 1.6 GY TO PELVIC VOLUME EVERY MORNING FOR 13 DAYS (INDUCTION)
     Route: 065
  8. RADIATION THERAPY [Suspect]
     Active Substance: RADIATION THERAPY
     Dosage: 1.5 GY TO BLADDER FOR FIRST 5 DAYS, AND 1.5 GY TO BLADDER TUMOR FOR 8 DAYS (INDUCTION)
     Route: 065
  9. RADIATION THERAPY [Suspect]
     Active Substance: RADIATION THERAPY
     Dosage: 1.5 GY TO PELVIC VOLUME TWICE A DAY FOR 8 DAYS (CONSOLIDATION)
     Route: 065

REACTIONS (1)
  - Haemorrhage intracranial [Fatal]
